FAERS Safety Report 6128565-2 (Version None)
Quarter: 2009Q1

REPORT INFORMATION
  Report Type: 
  Country: None (occurrence: None)
  Receive Date: 20090323
  Receipt Date: 20090318
  Transmission Date: 20090719
  Serious: Yes (Other)
  Sender: FDA-Public Use
  Company Number: FR-ROXANE LABORATORIES, INC.-2009-RO-00259RO

PATIENT
  Age: 73 Year
  Sex: Female

DRUGS (1)
  1. TAMOXIFEN CITRATE [Suspect]
     Indication: ANTIOESTROGEN THERAPY
     Dosage: 20MG

REACTIONS (2)
  - UTERINE CANCER [None]
  - UTERINE ENLARGEMENT [None]
